FAERS Safety Report 4450316-8 (Version None)
Quarter: 2004Q3

REPORT INFORMATION
  Report Type: 
  Country: None (occurrence: None)
  Receive Date: 20040914
  Receipt Date: 20040906
  Transmission Date: 20050211
  Serious: Yes (Death)
  Sender: FDA-Public Use
  Company Number: F01200402712

PATIENT
  Age: 73 Year
  Sex: Male

DRUGS (2)
  1. OXALIPLATIN [Suspect]
     Indication: COLON CANCER
     Dosage: 80 MG/M2 Q2W
     Route: 042
     Dates: start: 20040826, end: 20040826
  2. (FLOUROURACIL) - SOLUTION - 3000 MG/M2 [Suspect]
     Dosage: 3000 MG/M2 Q2W
     Route: 042
     Dates: start: 20040826, end: 20040828

REACTIONS (4)
  - HYPERGLYCAEMIA [None]
  - METABOLIC ACIDOSIS [None]
  - SEPSIS [None]
  - SEPTIC SHOCK [None]
